FAERS Safety Report 5917060-9 (Version None)
Quarter: 2008Q4

REPORT INFORMATION
  Report Type: 
  Country: None (occurrence: None)
  Receive Date: 20081014
  Receipt Date: 20081008
  Transmission Date: 20090506
  Serious: Yes (Life-Threatening)
  Sender: FDA-Public Use
  Company Number: JP-BAYER-200812239BYL

PATIENT
  Age: 59 Year
  Sex: Male
  Weight: 69 kg

DRUGS (2)
  1. CIPROXAN-I.V. [Suspect]
     Indication: SEPSIS
     Route: 041
     Dates: start: 20080822, end: 20080823
  2. TIENAM [Concomitant]
     Indication: SEPSIS
     Route: 041
     Dates: start: 20080818, end: 20080821

REACTIONS (1)
  - ENDOTOXIC SHOCK [None]
